FAERS Safety Report 8242821 (Version 3)
Quarter: 2013Q3

REPORT INFORMATION
  Report Type: Report from Study
  Country: IT (occurrence: IT)
  Receive Date: 20111114
  Receipt Date: 20130810
  Transmission Date: 20140515
  Serious: Yes (Death)
  Sender: FDA-Public Use
  Company Number: IT-ROCHE-1011800

PATIENT
  Sex: 0

DRUGS (1)
  1. ALTEPLASE [Suspect]
     Indication: ISCHAEMIC STROKE
     Dosage: (UPPER LIMIT 90MG) OF RTPA
     Route: 042

REACTIONS (1)
  - Respiratory failure [Fatal]
